FAERS Safety Report 11766403 (Version 1)
Quarter: 2015Q4

REPORT INFORMATION
  Report Type: Spontaneous
  Country: CH (occurrence: CH)
  Receive Date: 20151123
  Receipt Date: 20151123
  Transmission Date: 20160304
  Serious: Yes (Other)
  Sender: FDA-Public Use
  Company Number: CH-ROCHE-1663692

PATIENT
  Age: 80 Year
  Sex: Male
  Weight: 59.7 kg

DRUGS (19)
  1. MYCOSTATINE [Concomitant]
     Active Substance: NYSTATIN
     Indication: ORAL CANDIDIASIS
     Route: 049
     Dates: start: 20150918, end: 20150927
  2. ATORVASTATINE [Concomitant]
     Active Substance: ATORVASTATIN
     Route: 048
  3. CLEXANE [Concomitant]
     Active Substance: ENOXAPARIN SODIUM
     Indication: THROMBOSIS PROPHYLAXIS
     Route: 058
  4. ACIDE FOLIQUE [Concomitant]
     Active Substance: FOLIC ACID
     Indication: MALNUTRITION
     Route: 048
  5. SPIRIVA [Concomitant]
     Active Substance: TIOTROPIUM BROMIDE MONOHYDRATE
     Route: 055
  6. ALUCOL [Suspect]
     Active Substance: ALUMINUM HYDROXIDE\MAGNESIUM HYDROXIDE
     Indication: PRODUCT USED FOR UNKNOWN INDICATION
     Route: 048
     Dates: start: 20150916, end: 20150916
  7. NEBILET [Concomitant]
     Active Substance: NEBIVOLOL
     Route: 048
     Dates: start: 20150917
  8. LEXOTANIL [Suspect]
     Active Substance: BROMAZEPAM
     Indication: PRODUCT USED FOR UNKNOWN INDICATION
     Route: 048
     Dates: start: 20150917, end: 20150917
  9. TRAMADOL. [Concomitant]
     Active Substance: TRAMADOL
     Indication: PAIN MANAGEMENT
     Route: 048
  10. TORASEMIDE [Concomitant]
     Active Substance: TORSEMIDE
     Indication: HYPERVOLAEMIA
     Route: 048
     Dates: start: 20150919, end: 20150925
  11. FUROSEMIDE. [Suspect]
     Active Substance: FUROSEMIDE
     Indication: HYPERVOLAEMIA
     Route: 040
     Dates: start: 20150918, end: 20150918
  12. FERINJECT [Suspect]
     Active Substance: FERRIC CARBOXYMALTOSE
     Indication: PRODUCT USED FOR UNKNOWN INDICATION
     Route: 041
     Dates: start: 20150918, end: 20150918
  13. KONAKION MM [Concomitant]
     Indication: MALNUTRITION
     Route: 040
     Dates: start: 20150916, end: 20150926
  14. CEFTRIAXONE. [Suspect]
     Active Substance: CEFTRIAXONE
     Indication: PNEUMONIA
     Route: 040
     Dates: start: 20150915, end: 20150921
  15. NEXIUM [Concomitant]
     Active Substance: ESOMEPRAZOLE MAGNESIUM
     Route: 048
     Dates: start: 20150917
  16. QUETIAPINE [Concomitant]
     Active Substance: QUETIAPINE
     Route: 048
     Dates: start: 20150919, end: 20150930
  17. BECOZYME FORTE [Concomitant]
     Indication: MALNUTRITION
     Route: 048
  18. BENERVA [Concomitant]
     Active Substance: THIAMINE
     Indication: MALNUTRITION
     Route: 048
  19. PARACETAMOL [Suspect]
     Active Substance: ACETAMINOPHEN
     Indication: PAIN MANAGEMENT
     Route: 048
     Dates: start: 20150916, end: 20150922

REACTIONS (2)
  - Liver injury [Recovered/Resolved]
  - Acute hepatic failure [Recovered/Resolved]

NARRATIVE: CASE EVENT DATE: 20150922
